FAERS Safety Report 18881584 (Version 2)
Quarter: 2021Q1

REPORT INFORMATION
  Report Type: Spontaneous
  Country: JP (occurrence: JP)
  Receive Date: 20210211
  Receipt Date: 20210303
  Transmission Date: 20210420
  Serious: Yes (Death, Hospitalization)
  Sender: FDA-Public Use
  Company Number: JP-CELGENEUS-JPN-20210202706

PATIENT
  Age: 80 Year
  Sex: Female
  Weight: 46.7 kg

DRUGS (9)
  1. NOVAMIN [Concomitant]
     Indication: CANCER PAIN
     Route: 048
     Dates: start: 20210114
  2. GEMCITABINE. [Suspect]
     Active Substance: GEMCITABINE
     Indication: PANCREATIC CARCINOMA RECURRENT
     Route: 041
     Dates: start: 20210118
  3. ABRAXANE [Suspect]
     Active Substance: PACLITAXEL
     Indication: PANCREATIC CARCINOMA METASTATIC
  4. ABRAXANE [Suspect]
     Active Substance: PACLITAXEL
     Indication: PANCREATIC CARCINOMA RECURRENT
     Route: 041
     Dates: start: 20210118
  5. GEMCITABINE. [Suspect]
     Active Substance: GEMCITABINE
     Indication: PANCREATIC CARCINOMA METASTATIC
  6. TRAMAL [Concomitant]
     Active Substance: TRAMADOL
     Dosage: 75 MILLIGRAM
     Route: 065
     Dates: start: 20210115
  7. LOXOPROFEN [Concomitant]
     Active Substance: LOXOPROFEN
     Indication: CANCER PAIN
     Route: 048
     Dates: start: 20210114
  8. TRAMAL [Concomitant]
     Active Substance: TRAMADOL
     Indication: CANCER PAIN
     Route: 065
     Dates: start: 20210114
  9. OXYCODONE HYDROCHLORIDE HYDRATE [Concomitant]
     Active Substance: OXYCODONE HYDROCHLORIDE
     Indication: CANCER PAIN
     Dosage: 10 MILLIGRAM
     Route: 065
     Dates: start: 20210122

REACTIONS (3)
  - Disseminated intravascular coagulation [Fatal]
  - Ileus [Not Recovered/Not Resolved]
  - Pneumonia aspiration [Fatal]

NARRATIVE: CASE EVENT DATE: 20210121
